FAERS Safety Report 5673078-5 (Version None)
Quarter: 2008Q1

REPORT INFORMATION
  Report Type: 
  Country: None (occurrence: None)
  Receive Date: 20080317
  Receipt Date: 20080228
  Transmission Date: 20080703
  Serious: Yes (Hospitalization)
  Sender: FDA-Public Use
  Company Number: DSA_31571_2008

PATIENT
  Age: 63 Year
  Sex: Male

DRUGS (5)
  1. LORAZEPAM [Suspect]
     Dosage: (10 MG)
     Dates: start: 20060710, end: 20060711
  2. LEVOTHYROXINE SODIUM [Suspect]
     Dosage: (300 DF ORAL)
     Route: 048
     Dates: start: 20060710, end: 20060711
  3. GLIBENCLAMIDE (GLIBENCLAMIDE) 2.5 MG [Suspect]
     Dosage: (100 MG ORAL)
     Route: 048
     Dates: start: 20060710, end: 20060711
  4. LEVOTHYROXINE SODIUM [Suspect]
     Indication: HYPOTHYROIDISM
     Dosage: (DF ORAL)
     Route: 048
  5. GLYBURIDE [Suspect]
     Indication: TYPE 2 DIABETES MELLITUS
     Dosage: (DF ORAL)
     Route: 048

REACTIONS (4)
  - BLOOD GLUCOSE DECREASED [None]
  - MULTIPLE DRUG OVERDOSE INTENTIONAL [None]
  - SUICIDE ATTEMPT [None]
  - THYROID FUNCTION TEST ABNORMAL [None]
